FAERS Safety Report 8935688 (Version 2)
Quarter: 2012Q4

REPORT INFORMATION
  Report Type: 
  Country: US (occurrence: US)
  Receive Date: 20121130
  Receipt Date: 20121214
  Transmission Date: 20130627
  Serious: Yes (Hospitalization, Other)
  Sender: FDA-Public Use
  Company Number: US-GENZYME-MOZO-1000782

PATIENT
  Age: 69 Year
  Sex: Female
  Weight: 47.3 kg

DRUGS (18)
  1. MOZOBIL [Suspect]
     Indication: HAEMATOPOIETIC STEM CELL MOBILISATION
     Dosage: 27000 mcg, qd
     Route: 058
     Dates: start: 20121022, end: 20121026
  2. MOZOBIL [Suspect]
     Indication: MYELODYSPLASTIC SYNDROME
     Dosage: 26000 mcg, qd
     Route: 058
     Dates: start: 20121130
  3. G-CSF [Suspect]
     Indication: MYELODYSPLASTIC SYNDROME
     Dosage: 238 mcg, qd
     Route: 058
     Dates: start: 20121022, end: 20121026
  4. G-CSF [Suspect]
     Dosage: 230 mg, qd
     Route: 058
     Dates: start: 20121130
  5. VIDAZA [Suspect]
     Indication: MYELODYSPLASTIC SYNDROME
     Dosage: 110 mcg, qd
     Route: 058
     Dates: start: 20121022, end: 20121026
  6. VIDAZA [Suspect]
     Dosage: 105 mg, qd
     Route: 058
     Dates: start: 20121130
  7. NEXIAM [Concomitant]
     Indication: PROPHYLAXIS
     Dosage: UNK
     Route: 048
  8. VANCOMYCIN [Concomitant]
     Indication: PRODUCT USED FOR UNKNOWN INDICATION
     Dosage: UNK
     Route: 065
     Dates: start: 20121103
  9. ALENDRONATE SODIUM [Concomitant]
     Indication: OSTEOPOROSIS
     Dosage: UNK
     Route: 065
     Dates: start: 2012
  10. ALENDRONATE SODIUM [Concomitant]
     Dosage: 70 mg, 1x/w
     Route: 065
     Dates: start: 2012
  11. ANTIBIOTICS [Concomitant]
     Indication: SEPSIS
     Dosage: UNK
     Route: 065
  12. VALTREX [Concomitant]
     Indication: PRODUCT USED FOR UNKNOWN INDICATION
     Dosage: 500 mg, UNK
     Route: 048
  13. PHENOBARBITAL [Concomitant]
     Indication: PRODUCT USED FOR UNKNOWN INDICATION
     Dosage: 60 mg, qd at bedtime
     Route: 065
  14. DILANTIN [Concomitant]
     Indication: CONVULSION
     Dosage: 200 mg, qd at bedtime
     Route: 065
     Dates: start: 20121126
  15. VALACICLOVIR [Concomitant]
     Indication: PRODUCT USED FOR UNKNOWN INDICATION
     Dosage: 500 mg, qd
     Route: 065
  16. OXYCODONE [Concomitant]
     Indication: PAIN
     Dosage: 5 mg, every 4 hours as needed
     Route: 065
  17. BENADRYL [Concomitant]
     Indication: PREMEDICATION
     Dosage: UNK
     Route: 065
     Dates: start: 2012
  18. TYLENOL [Concomitant]
     Indication: PREMEDICATION
     Dosage: UNK
     Route: 065
     Dates: start: 2012

REACTIONS (18)
  - Cellulitis [Not Recovered/Not Resolved]
  - Pain in extremity [Unknown]
  - Oedema peripheral [Unknown]
  - Joint swelling [Unknown]
  - Pyrexia [Unknown]
  - Convulsion [Unknown]
  - Anaemia [Unknown]
  - Haematuria [Unknown]
  - Proteinuria [Unknown]
  - Thrombocytopenia [Unknown]
  - Arthralgia [Unknown]
  - Back pain [Unknown]
  - Oropharyngeal pain [Unknown]
  - Abdominal tenderness [Unknown]
  - Osteoarthritis [Unknown]
  - Pyrexia [Unknown]
  - Ecchymosis [Unknown]
  - Constipation [Unknown]
